FAERS Safety Report 11024953 (Version 1)
Quarter: 2015Q2

REPORT INFORMATION
  Report Type: Spontaneous
  Country: IT (occurrence: IT)
  Receive Date: 20150414
  Receipt Date: 20150414
  Transmission Date: 20150821
  Serious: Yes (Hospitalization)
  Sender: FDA-Public Use
  Company Number: IT-ROCHE-1563377

PATIENT
  Age: 51 Year
  Sex: Female

DRUGS (4)
  1. RIVOTRIL [Suspect]
     Active Substance: CLONAZEPAM
     Indication: DRUG ABUSE
     Dosage: 2 MG TABLETS 20 TABLETS
     Route: 048
     Dates: start: 20150306, end: 20150306
  2. QUETIAPINE [Concomitant]
     Active Substance: QUETIAPINE
     Route: 048
  3. TRITTICO [Suspect]
     Active Substance: TRAZODONE HYDROCHLORIDE
     Indication: DRUG ABUSE
     Dosage: 150 MG EXTENDED-RELEASE TABLETS^ 20 DIVISIBLE TAB
     Route: 048
     Dates: start: 20150306, end: 20150306
  4. DEPAKIN [Concomitant]
     Active Substance: VALPROATE SODIUM
     Dosage: 500 MG GASTRO-RESISTANT TABLETS 40 TABLETS
     Route: 048

REACTIONS (2)
  - Slow speech [Recovered/Resolved]
  - Drug abuse [Unknown]

NARRATIVE: CASE EVENT DATE: 20150306
